FAERS Safety Report 4327681-5 (Version None)
Quarter: 2004Q1

REPORT INFORMATION
  Report Type: 
  Country: None (occurrence: None)
  Receive Date: 20040331
  Receipt Date: 20040107
  Transmission Date: 20041129
  Serious: No
  Sender: FDA-Public Use
  Company Number: US-GLAXOSMITHKLINE-A0491899A

PATIENT
  Age: 38 Year
  Sex: Female

DRUGS (2)
  1. AMERGE [Suspect]
     Indication: MIGRAINE
     Dosage: 1.25MG UNKNOWN
     Route: 048
  2. THYROID TAB [Concomitant]

REACTIONS (2)
  - DIARRHOEA [None]
  - MUSCLE CRAMP [None]
